FAERS Safety Report 11508253 (Version 1)
Quarter: 2015Q3

REPORT INFORMATION
  Report Type: Spontaneous
  Country: US (occurrence: US)
  Receive Date: 20150903
  Receipt Date: 20150903
  Transmission Date: 20151125
  Serious: No
  Sender: FDA-Public Use
  Company Number: US-ELI_LILLY_AND_COMPANY-US200910000694

PATIENT
  Age: 84 Year
  Sex: Female

DRUGS (7)
  1. ALTACE [Concomitant]
     Active Substance: RAMIPRIL
  2. HUMALOG [Suspect]
     Active Substance: INSULIN LISPRO
     Dosage: 12 U, EACH MORNING
  3. NORVASC [Concomitant]
     Active Substance: AMLODIPINE BESYLATE
  4. HUMALOG [Suspect]
     Active Substance: INSULIN LISPRO
     Dosage: 4 U, UNK
     Dates: start: 20091002
  5. AVALIDE [Concomitant]
     Active Substance: HYDROCHLOROTHIAZIDE\IRBESARTAN
     Dosage: 300 D/F, UNK
  6. LANTUS [Concomitant]
     Active Substance: INSULIN GLARGINE
  7. HUMALOG [Suspect]
     Active Substance: INSULIN LISPRO
     Dosage: 9 U, EACH MORNING

REACTIONS (2)
  - Drug dose omission [Recovered/Resolved]
  - Incorrect dose administered [Recovered/Resolved]

NARRATIVE: CASE EVENT DATE: 20091002
